FAERS Safety Report 14116765 (Version 1)
Quarter: 2017Q4

REPORT INFORMATION
  Report Type: Report from Study
  Country: JP (occurrence: JP)
  Receive Date: 20171023
  Receipt Date: 20171023
  Transmission Date: 20180321
  Serious: Yes (Death, Hospitalization, Other)
  Sender: FDA-Public Use
  Company Number: JP-AMGEN-JPNCT2016185737

PATIENT
  Age: 75 Year
  Sex: Male
  Weight: 72 kg

DRUGS (12)
  1. SOLDEM 3A [Concomitant]
     Active Substance: CARBOHYDRATES\POTASSIUM CHLORIDE\SODIUM CHLORIDE\SODIUM LACTATE
     Indication: FLUID REPLACEMENT
     Dosage: 20 ML/HR
     Route: 041
     Dates: start: 20161214, end: 20161221
  2. HEPARIN [Concomitant]
     Active Substance: HEPARIN SODIUM
     Indication: THROMBOSIS PROPHYLAXIS
     Dosage: 2 ML/HR
     Route: 042
     Dates: start: 20161216, end: 20161221
  3. ACELIO [Concomitant]
     Active Substance: ACETAMINOPHEN
     Indication: ANTIPYRESIS
     Dosage: 1000 MG, PRN
     Route: 042
     Dates: start: 20161216, end: 20161228
  4. GASTER [Concomitant]
     Active Substance: FAMOTIDINE
     Indication: PROPHYLAXIS AGAINST GASTROINTESTINAL ULCER
     Dosage: 20 MG, QD
     Route: 042
     Dates: start: 20161214, end: 20161221
  5. GASMOTIN [Concomitant]
     Active Substance: MOSAPRIDE CITRATE
     Indication: GASTROINTESTINAL HYPOMOTILITY
     Dosage: 0.5 G, TID
     Route: 048
     Dates: start: 20161215, end: 20161231
  6. ZOSYN [Concomitant]
     Active Substance: PIPERACILLIN SODIUM\TAZOBACTAM SODIUM
     Indication: PNEUMONIA ASPIRATION
     Dosage: 4.5 G, TID
     Route: 042
     Dates: start: 20161218, end: 20161227
  7. SOLULACT [Concomitant]
     Indication: FLUID REPLACEMENT
     Dosage: UNK
     Route: 041
     Dates: start: 20161213, end: 20161220
  8. BFLUID [Concomitant]
     Active Substance: AMINO ACIDS\DEXTROSE\ELECTROLYTES NOS\VITAMINS
     Indication: FLUID REPLACEMENT
     Dosage: 40 ML/HR
     Route: 041
     Dates: start: 20161215, end: 20161221
  9. HUMULIN R [Concomitant]
     Active Substance: INSULIN HUMAN
     Indication: GLUCOSE TOLERANCE IMPAIRED
     Dosage: UNK
     Route: 058
     Dates: start: 20161216
  10. FILGRASTIM - KHK [Suspect]
     Active Substance: FILGRASTIM
     Indication: SPINAL CORD INJURY CERVICAL
     Dosage: 400 MUG/M2, UNK
     Route: 041
     Dates: start: 20161214, end: 20161218
  11. ZOLPIDEM TARTRATE. [Concomitant]
     Active Substance: ZOLPIDEM TARTRATE
     Indication: INSOMNIA
     Dosage: 5 MG, PRN
     Route: 048
     Dates: start: 20161213, end: 20161222
  12. FENTANYL. [Concomitant]
     Active Substance: FENTANYL
     Indication: SEDATION
     Dosage: 1.6 ML/HR
     Route: 042
     Dates: start: 20161213

REACTIONS (1)
  - Acute respiratory distress syndrome [Fatal]

NARRATIVE: CASE EVENT DATE: 20161218
